FAERS Safety Report 5632158-0 (Version None)
Quarter: 2008Q1

REPORT INFORMATION
  Report Type: 
  Country: None (occurrence: None)
  Receive Date: 20080220
  Receipt Date: 20080218
  Transmission Date: 20080703
  Serious: Yes (Hospitalization)
  Sender: FDA-Public Use
  Company Number: DE-MERCK-0801DEU00136

PATIENT
  Age: 95 Year
  Sex: Male
  Weight: 63 kg

DRUGS (6)
  1. INVANZ [Suspect]
     Route: 042
     Dates: start: 20080125, end: 20080126
  2. ASPIRIN [Concomitant]
     Indication: CORONARY ARTERY DISEASE
     Route: 048
  3. AMLODIPINE BESYLATE [Concomitant]
     Indication: HYPERTENSION
     Route: 048
  4. ACETAMINOPHEN [Concomitant]
     Indication: PYREXIA
     Route: 065
     Dates: start: 20080126
  5. FUROSEMIDE [Concomitant]
     Indication: RENAL FAILURE
     Route: 065
     Dates: start: 20080125
  6. ELECTROLYTES (UNSPECIFIED) AND SODIUM LACTATE [Concomitant]
     Route: 065
     Dates: start: 20080125

REACTIONS (1)
  - HYPOGLYCAEMIA [None]
